FAERS Safety Report 10012795 (Version 1)
Quarter: 2014Q1

REPORT INFORMATION
  Report Type: Spontaneous
  Country: US (occurrence: US)
  Receive Date: 20140314
  Receipt Date: 20140314
  Transmission Date: 20141002
  Serious: Yes (Other)
  Sender: FDA-Public Use
  Company Number: CHPA2014US003958

PATIENT
  Age: 86 Year
  Sex: Female

DRUGS (1)
  1. KERI ADVANCED [Suspect]
     Indication: DRY SKIN
     Dosage: UNK
     Route: 061

REACTIONS (1)
  - Brain neoplasm [Not Recovered/Not Resolved]
